FAERS Safety Report 14568240 (Version 1)
Quarter: 2018Q1

REPORT INFORMATION
  Report Type: Spontaneous
  Country: US (occurrence: US)
  Receive Date: 20180223
  Receipt Date: 20180223
  Transmission Date: 20180509
  Serious: No
  Sender: FDA-Public Use
  Company Number: US-IMPAX LABORATORIES, INC-2017-IPXL-03801

PATIENT
  Age: 47 Year
  Sex: Female

DRUGS (2)
  1. PYRANTEL PAMOATE. [Concomitant]
     Active Substance: PYRANTEL PAMOATE
     Indication: ENTEROBIASIS
     Dosage: UNK
     Route: 065
  2. EMVERM [Suspect]
     Active Substance: MEBENDAZOLE
     Indication: ENTEROBIASIS
     Dosage: 100MG, TABLET, EVENING
     Route: 048
     Dates: start: 20171218

REACTIONS (1)
  - Drug ineffective [Unknown]
